FAERS Safety Report 5367073-3 (Version None)
Quarter: 2007Q2

REPORT INFORMATION
  Report Type: 
  Country: None (occurrence: None)
  Receive Date: 20070622
  Receipt Date: 20070621
  Transmission Date: 20071010
  Serious: Yes (Hospitalization)
  Sender: FDA-Public Use
  Company Number: B0475816A

PATIENT
  Age: 67 Year
  Sex: Male

DRUGS (5)
  1. AUGMENTIN '125' [Suspect]
     Dosage: 3G PER DAY
     Route: 048
     Dates: start: 20070326, end: 20070403
  2. SOLUPRED [Suspect]
     Dosage: 40MG PER DAY
     Route: 048
     Dates: start: 20070326, end: 20070331
  3. UBISTESIN [Concomitant]
     Dosage: 1UNIT SINGLE DOSE
     Route: 058
     Dates: start: 20070315, end: 20070315
  4. SELECTOL [Concomitant]
     Indication: ESSENTIAL HYPERTENSION
     Dosage: 100MG PER DAY
     Route: 048
  5. LIPANTHYL [Concomitant]
     Dosage: 100MG PER DAY
     Route: 048

REACTIONS (6)
  - EOSINOPHILIA [None]
  - ERYTHEMA [None]
  - PRURITUS [None]
  - PURPURA [None]
  - RASH MACULO-PAPULAR [None]
  - RASH SCARLATINIFORM [None]
